FAERS Safety Report 20676889 (Version 2)
Quarter: 2022Q2

REPORT INFORMATION
  Report Type: Report from Study
  Country: US (occurrence: US)
  Receive Date: 20220406
  Receipt Date: 20220422
  Transmission Date: 20220720
  Serious: Yes (Hospitalization, Other)
  Sender: FDA-Public Use
  Company Number: US-BRISTOL-MYERS SQUIBB COMPANY-2022-013422

PATIENT
  Age: 53 Year
  Sex: Male
  Weight: 78 kg

DRUGS (17)
  1. NIVOLUMAB [Suspect]
     Active Substance: NIVOLUMAB
     Indication: Bladder cancer
     Dosage: MOST RECENT DOSE RECEIVED ON 24-FEB-2022 AT THE DOSE OF 480 MG
     Route: 042
     Dates: start: 20210511, end: 20220224
  2. NIVOLUMAB [Suspect]
     Active Substance: NIVOLUMAB
  3. GEMCITABINE HYDROCHLORIDE [Suspect]
     Active Substance: GEMCITABINE HYDROCHLORIDE
     Indication: Bladder cancer
     Dosage: MOST RECENT DOSE RECEIVED ON 28-JUL-2021 AT THE DOSE OF 1939MG
     Dates: start: 20210511, end: 20210728
  4. GEMCITABINE HYDROCHLORIDE [Suspect]
     Active Substance: GEMCITABINE HYDROCHLORIDE
  5. CISPLATIN [Suspect]
     Active Substance: CISPLATIN
     Indication: Bladder cancer
     Dosage: MOST RECENT DOSES OF CISPLATIN ON 28-JULY-2021
     Route: 065
     Dates: start: 20210511, end: 20210728
  6. PEGFILGRASTIM [Concomitant]
     Active Substance: PEGFILGRASTIM
     Indication: Product used for unknown indication
     Route: 058
     Dates: start: 20210804
  7. FAMOTIDINE [Concomitant]
     Active Substance: FAMOTIDINE
     Indication: Product used for unknown indication
     Dosage: ONGOING
     Route: 048
     Dates: start: 20210101
  8. FAMOTIDINE [Concomitant]
     Active Substance: FAMOTIDINE
     Route: 048
     Dates: start: 20190101
  9. DEXTRIN\WHEAT [Concomitant]
     Active Substance: ICODEXTRIN\WHEAT
     Indication: Product used for unknown indication
     Route: 048
     Dates: start: 20210517
  10. ONDANSETRON [Concomitant]
     Active Substance: ONDANSETRON
     Indication: Product used for unknown indication
     Dosage: ONGOING
     Route: 048
     Dates: start: 20210512
  11. ZYRTEC [Concomitant]
     Active Substance: CETIRIZINE HYDROCHLORIDE
     Indication: Product used for unknown indication
     Dosage: ONGOING
     Route: 048
     Dates: start: 20000101
  12. DEXAMETHASONE [Concomitant]
     Active Substance: DEXAMETHASONE
     Indication: Product used for unknown indication
     Dosage: ONGOING
     Route: 048
     Dates: start: 20210512
  13. CHOECALCIFEROL [Concomitant]
     Indication: Product used for unknown indication
     Dosage: 1 DOSAGE FORM = 4000 UNIT NOS?ONGOING
     Route: 048
     Dates: start: 20210301
  14. FLUTICASONE PROPION SALMETEROL [Concomitant]
     Indication: Product used for unknown indication
     Dosage: 1 DOSAGE FORM  = 113 UNIT NOS?ONGOING
     Route: 055
     Dates: start: 20000101
  15. IBUPROFEN [Concomitant]
     Active Substance: IBUPROFEN
     Indication: Product used for unknown indication
     Dosage: ONGOING
     Route: 048
     Dates: start: 20210512
  16. LISINOPRIL [Concomitant]
     Active Substance: LISINOPRIL
     Indication: Product used for unknown indication
     Dosage: ONGOING
     Route: 048
     Dates: start: 20210416
  17. OLANZAPINE [Concomitant]
     Active Substance: OLANZAPINE
     Indication: Product used for unknown indication
     Dosage: ONGOING
     Route: 048
     Dates: start: 20210511

REACTIONS (1)
  - Acute kidney injury [Not Recovered/Not Resolved]

NARRATIVE: CASE EVENT DATE: 20220324
